FAERS Safety Report 10653128 (Version 2)
Quarter: 2014Q4

REPORT INFORMATION
  Report Type: Spontaneous
  Country: JP (occurrence: JP)
  Receive Date: 20141215
  Receipt Date: 20141226
  Transmission Date: 20150529
  Serious: Yes (Other)
  Sender: FDA-Public Use
  Company Number: JP-GLAXOSMITHKLINE-JP2014JPN032798

PATIENT
  Sex: Male
  Weight: 60 kg

DRUGS (8)
  1. TRAMAL [Concomitant]
     Active Substance: TRAMADOL
     Dosage: 25 MG, QID
  2. CRESTOR [Concomitant]
     Active Substance: ROSUVASTATIN CALCIUM
     Dosage: 2.5 MG, QD
  3. ZOLPIDEM TARTRATE. [Concomitant]
     Active Substance: ZOLPIDEM TARTRATE
     Dosage: 10 MG, QD
  4. VOTRIENT [Suspect]
     Active Substance: PAZOPANIB HYDROCHLORIDE
     Indication: RENAL CELL CARCINOMA
     Dosage: 800 MG, QD
     Route: 048
     Dates: start: 20141117, end: 20141123
  5. URINORM [Concomitant]
     Active Substance: BENZBROMARONE
     Dosage: 50 MG, QD
  6. GLIMEPIRIDE. [Concomitant]
     Active Substance: GLIMEPIRIDE
     Dosage: 1 MG, QD
  7. AMLODIPINE [Concomitant]
     Active Substance: AMLODIPINE BESYLATE
     Dosage: 5 MG, BID
  8. REBAMIPIDE [Concomitant]
     Active Substance: REBAMIPIDE
     Dosage: 100 MG, BID

REACTIONS (5)
  - Seizure [Recovered/Resolved]
  - Epilepsy [Unknown]
  - Disorientation [Unknown]
  - Somnolence [Unknown]
  - Loss of consciousness [Unknown]
